FAERS Safety Report 5395998-1 (Version None)
Quarter: 2007Q3

REPORT INFORMATION
  Report Type: 
  Country: None (occurrence: None)
  Receive Date: 20070724
  Receipt Date: 20070712
  Transmission Date: 20080115
  Serious: Yes (Hospitalization, Other)
  Sender: FDA-Public Use
  Company Number: US-PFIZER INC-2007058265

PATIENT
  Sex: Male

DRUGS (2)
  1. CELEBREX [Suspect]
     Indication: HYPERTENSION
     Dates: start: 20021014, end: 20040318
  2. CELEBREX [Suspect]
     Indication: OBSTRUCTION

REACTIONS (2)
  - CEREBROVASCULAR ACCIDENT [None]
  - INTERVERTEBRAL DISC PROTRUSION [None]
